FAERS Safety Report 8180902-3 (Version None)
Quarter: 2012Q1

REPORT INFORMATION
  Report Type: 
  Country: None (occurrence: None)
  Receive Date: 20120302
  Receipt Date: 20120227
  Transmission Date: 20120608
  Serious: Yes (Death, Life-Threatening, Hospitalization)
  Sender: FDA-Public Use
  Company Number: JP-ELI_LILLY_AND_COMPANY-JP201108005506

PATIENT
  Sex: Male
  Weight: 52 kg

DRUGS (2)
  1. SEROTONE [Concomitant]
     Indication: PROPHYLAXIS
     Dosage: UNK
     Dates: start: 20100119, end: 20100316
  2. GEMZAR [Suspect]
     Indication: PANCREATIC CARCINOMA
     Dosage: 1570 MG, UNK
     Route: 042
     Dates: start: 20100119, end: 20100316

REACTIONS (3)
  - SEPSIS [None]
  - CHOLANGITIS [None]
  - INTERSTITIAL LUNG DISEASE [None]
